FAERS Safety Report 8887599 (Version 1)
Quarter: 2012Q4

REPORT INFORMATION
  Report Type: Spontaneous
  Country: US (occurrence: None)
  Receive Date: 20121101
  Receipt Date: 20121101
  Transmission Date: 20130627
  Serious: Yes (Hospitalization)
  Sender: FDA-Public Use
  Company Number: None

PATIENT
  Age: 32 Year
  Sex: Female
  Weight: 74.84 kg

DRUGS (1)
  1. SERTRALINE HCL [Suspect]
     Indication: DEPRESSION
     Dosage: 1 pill  1x/day before bed
     Dates: start: 20120911, end: 20121026

REACTIONS (23)
  - Vision blurred [None]
  - Dizziness [None]
  - Dysarthria [None]
  - Confusional state [None]
  - Loss of consciousness [None]
  - Convulsion [None]
  - Fatigue [None]
  - Syncope [None]
  - Hyperventilation [None]
  - Balance disorder [None]
  - Headache [None]
  - Tremor [None]
  - Sluggishness [None]
  - Tremor [None]
  - Vertigo [None]
  - Disturbance in attention [None]
  - Confusional state [None]
  - Memory impairment [None]
  - Mydriasis [None]
  - Visual impairment [None]
  - Erythema [None]
  - Anxiety [None]
  - Feeling abnormal [None]
